FAERS Safety Report 23681662 (Version 1)
Quarter: 2024Q1

REPORT INFORMATION
  Report Type: Spontaneous
  Country: JP (occurrence: JP)
  Receive Date: 20240328
  Receipt Date: 20240328
  Transmission Date: 20240410
  Serious: Yes (Hospitalization)
  Sender: FDA-Public Use
  Company Number: JP-JUBILANT CADISTA PHARMACEUTICALS-2024JP000348

PATIENT
  Sex: Female

DRUGS (3)
  1. TIZANIDINE [Suspect]
     Active Substance: TIZANIDINE
     Indication: Neck pain
     Dosage: 3 MG, ONCE PER DAY
  2. TIZANIDINE [Suspect]
     Active Substance: TIZANIDINE
     Dosage: 8 MG, ONCE PER DAY
  3. ETIZOLAM [Concomitant]
     Active Substance: ETIZOLAM
     Indication: Insomnia
     Dosage: 0.5 MG, ONCE PER DAY

REACTIONS (11)
  - Withdrawal syndrome [Recovered/Resolved]
  - Hallucination, auditory [Recovered/Resolved]
  - Decorticate posture [Recovered/Resolved]
  - Hypertension [Recovered/Resolved]
  - Tachycardia [Recovered/Resolved]
  - Tachypnoea [Recovered/Resolved]
  - Tremor [Recovered/Resolved]
  - Hallucination, visual [Recovered/Resolved]
  - Nausea [Recovered/Resolved]
  - Delusion [Recovered/Resolved]
  - Insomnia [Recovered/Resolved]
